FAERS Safety Report 8885308 (Version 2)
Quarter: 2012Q4

REPORT INFORMATION
  Report Type: 
  Country: US (occurrence: US)
  Receive Date: 20121101
  Receipt Date: 20121112
  Transmission Date: 20130627
  Serious: No
  Sender: FDA-Public Use
  Company Number: US-VERTEX PHARMACEUTICAL INC.-2012-023884

PATIENT
  Age: 58 Year
  Sex: Male
  Weight: 87 kg

DRUGS (8)
  1. INCIVEK [Suspect]
     Indication: HEPATITIS C
     Dosage: 750 mg, tid
     Route: 048
     Dates: start: 20121028
  2. RIBAVIRIN [Suspect]
     Indication: HEPATITIS C
     Dosage: 400 mg AM,600 mg PM
     Route: 048
     Dates: start: 20121028
  3. PEGASYS [Suspect]
     Indication: HEPATITIS C
     Dosage: 180 ?g, weekly
     Route: 058
     Dates: start: 20121028
  4. BISOPROLOL [Concomitant]
     Indication: HYPERTENSION
     Dosage: 3 mg, qd
     Route: 048
  5. FLOMAX                             /00889901/ [Concomitant]
     Indication: BENIGN PROSTATIC HYPERPLASIA
     Dosage: 0.4 mg, qd
     Route: 048
  6. OMEPRAZOLE [Concomitant]
     Indication: GASTROOESOPHAGEAL REFLUX DISEASE
     Dosage: 20 mg, qd
     Route: 048
  7. TRAMADOL [Concomitant]
     Indication: PAIN
     Dosage: 50 mg, prn
     Route: 048
  8. ALEVE [Concomitant]
     Indication: PAIN
     Dosage: 1-2 tablets
     Route: 048

REACTIONS (1)
  - Pollakiuria [Unknown]
